FAERS Safety Report 8618791-2 (Version None)
Quarter: 2012Q3

REPORT INFORMATION
  Report Type: 
  Country: None (occurrence: None)
  Receive Date: 20120824
  Receipt Date: 20120808
  Transmission Date: 20120928
  Serious: Yes (Other)
  Sender: FDA-Public Use
  Company Number: US-PFIZER INC-2012198649

PATIENT
  Age: 82 Year
  Sex: Female
  Weight: 54 kg

DRUGS (18)
  1. DILANTIN-125 [Suspect]
     Indication: CONVULSION
     Dosage: 125MG/ 5ML
     Route: 048
     Dates: start: 20110321, end: 20110324
  2. DILANTIN [Suspect]
     Dosage: 100 MG, 3X/DAY (EVERY 8 HOURS)
     Route: 042
     Dates: start: 20110319, end: 20110324
  3. DILANTIN [Suspect]
     Dosage: 100MG/2ML EVERY 8 HOURS
     Route: 042
     Dates: start: 20110319
  4. POTASSIUM CHLORIDE [Concomitant]
     Dosage: 20MEQ/MS 1000ML
     Route: 042
     Dates: start: 20110308, end: 20110309
  5. DILANTIN [Suspect]
     Dosage: 750 MG, UNK
     Route: 042
     Dates: start: 20110319
  6. NORVASC [Concomitant]
     Dosage: 2.5 MG, 1X/DAY
     Route: 048
     Dates: start: 20110308, end: 20110313
  7. COLACE [Concomitant]
     Dosage: 100 MG, 2X/DAY
     Route: 048
     Dates: start: 20110308, end: 20110313
  8. PRILOSEC [Concomitant]
     Dosage: 20 MG, 1X/DAY
     Route: 048
     Dates: start: 20110308, end: 20110313
  9. ARICEPT [Concomitant]
     Dosage: 10 MG, 1X/DAY (AT BED TIME)
     Route: 048
     Dates: start: 20110307, end: 20110312
  10. ATIVAN [Concomitant]
     Indication: AGITATION
     Dosage: 1 ML, 3X/DAY (EVERY 8 HOURS)
     Route: 042
     Dates: start: 20110310, end: 20110318
  11. HEPARIN [Concomitant]
     Indication: ANTICOAGULANT THERAPY
     Dosage: 5000UNITS EVERY 8 HOURS
     Route: 058
     Dates: start: 20110310
  12. LEVAQUIN [Concomitant]
     Dosage: 250MG/50ML, EVERY 24 HOURS
     Route: 042
     Dates: start: 20110310, end: 20110320
  13. NEURONTIN [Concomitant]
     Indication: CONVULSION
     Dosage: 100 MG, 3X/DAY
     Route: 048
     Dates: start: 20110308, end: 20110313
  14. COZAAR [Concomitant]
     Dosage: 25 MG, 1X/DAY (DAILY EVERY MORNING)
     Route: 048
     Dates: start: 20110308, end: 20110313
  15. VITAMIN D [Concomitant]
     Dosage: 1000 MG, 1X/DAY (DAILY EVERY MORNING)
     Route: 048
     Dates: start: 20110308, end: 20110408
  16. DILANTIN [Suspect]
     Indication: CONVULSION
     Dosage: 100 MG, 2X/DAY
     Route: 048
     Dates: start: 20110313
  17. CEREBYX [Concomitant]
     Dosage: 300 MG, 1X/DAY (AT BED TIME)
     Route: 042
     Dates: start: 20110310
  18. FERROUS SULFATE [Concomitant]
     Dosage: 325 MG, 3X/DAY
     Route: 048
     Dates: start: 20110308, end: 20110313

REACTIONS (4)
  - DECUBITUS ULCER [None]
  - BLOOD UREA INCREASED [None]
  - DEHYDRATION [None]
  - BLOOD CREATININE INCREASED [None]
